FAERS Safety Report 6793839-9 (Version None)
Quarter: 2010Q2

REPORT INFORMATION
  Report Type: 
  Country: None (occurrence: None)
  Receive Date: 20100624
  Receipt Date: 20090720
  Transmission Date: 20101027
  Serious: No
  Sender: FDA-Public Use
  Company Number: US-PFIZER INC-2008099364

PATIENT
  Sex: Female
  Weight: 62.585 kg

DRUGS (3)
  1. XALATAN [Suspect]
     Indication: INTRAOCULAR PRESSURE INCREASED
     Dosage: 1 GTT, 1X/DAY
     Dates: start: 20070801
  2. COMBIVENT [Concomitant]
     Dosage: UNK
  3. FLOVENT [Concomitant]
     Dosage: UNK

REACTIONS (4)
  - DARK CIRCLES UNDER EYES [None]
  - EYE IRRITATION [None]
  - OCULAR HYPERAEMIA [None]
  - SKIN DISCOLOURATION [None]
